FAERS Safety Report 20130471 (Version 2)
Quarter: 2023Q1

REPORT INFORMATION
  Report Type: Spontaneous
  Country: US (occurrence: US)
  Receive Date: 20211130
  Receipt Date: 20230208
  Transmission Date: 20230417
  Serious: Yes (Other)
  Sender: FDA-Public Use
  Company Number: US-PFIZER INC-202101598909

PATIENT
  Age: 91 Year
  Sex: Female

DRUGS (1)
  1. VYNDAMAX [Suspect]
     Active Substance: TAFAMIDIS
     Dosage: 61 MG, UNK

REACTIONS (31)
  - Pulmonary embolism [Unknown]
  - Deep vein thrombosis [Unknown]
  - Deafness [Unknown]
  - Glaucoma [Unknown]
  - Neuropathy peripheral [Unknown]
  - Chronic kidney disease [Unknown]
  - Thyroid cancer [Unknown]
  - Breast cancer [Unknown]
  - Intraductal proliferative breast lesion [Unknown]
  - Cardiac failure congestive [Unknown]
  - Colorectal adenoma [Unknown]
  - Breast conserving surgery [Unknown]
  - Nervousness [Unknown]
  - Carpal tunnel syndrome [Unknown]
  - Pain in extremity [Unknown]
  - Lumbosacral radiculopathy [Unknown]
  - Eye inflammation [Unknown]
  - Arthralgia [Unknown]
  - Complex regional pain syndrome [Unknown]
  - Rhinitis allergic [Unknown]
  - Left ventricular hypertrophy [Unknown]
  - Cardiac murmur [Unknown]
  - Obesity [Unknown]
  - Vitamin D deficiency [Unknown]
  - Osteoarthritis [Unknown]
  - Skin disorder [Unknown]
  - Spinal osteoarthritis [Unknown]
  - Hyperlipidaemia [Unknown]
  - Upper-airway cough syndrome [Unknown]
  - Coagulopathy [Unknown]
  - Balance disorder [Unknown]
